FAERS Safety Report 11233404 (Version 2)
Quarter: 2015Q3

REPORT INFORMATION
  Report Type: Spontaneous
  Country: FI (occurrence: FI)
  Receive Date: 20150702
  Receipt Date: 20150706
  Transmission Date: 20151125
  Serious: Yes (Life-Threatening)
  Sender: FDA-Public Use
  Company Number: FI-ROCHE-1601011

PATIENT
  Age: 61 Year
  Sex: Male

DRUGS (15)
  1. TENOX (FINLAND) [Concomitant]
     Indication: INSOMNIA
     Route: 048
  2. CANDESARTAN [Concomitant]
     Active Substance: CANDESARTAN
     Indication: HYPERTENSION
     Route: 048
  3. MABTHERA [Suspect]
     Active Substance: RITUXIMAB
     Indication: IMMUNE THROMBOCYTOPENIC PURPURA
     Route: 042
     Dates: start: 20150410, end: 20150410
  4. BISOPROLOL [Concomitant]
     Active Substance: BISOPROLOL
     Indication: HYPERTENSION
     Route: 048
  5. IPRAMOL [Concomitant]
     Active Substance: ALBUTEROL SULFATE\IPRATROPIUM BROMIDE
     Indication: PREMEDICATION
     Route: 065
     Dates: start: 20150417
  6. ORADEXON [Concomitant]
     Active Substance: DEXAMETHASONE
     Indication: PREMEDICATION
     Route: 065
     Dates: start: 20150410
  7. PREDNISOLON [Concomitant]
     Active Substance: PREDNISOLONE
     Route: 065
     Dates: end: 20150601
  8. PARA-TABS [Concomitant]
     Active Substance: ACETAMINOPHEN
     Route: 065
     Dates: start: 20140417
  9. HISTEC [Concomitant]
     Indication: PREMEDICATION
     Route: 065
     Dates: start: 20140410
  10. OMEPRAZOL [Concomitant]
     Active Substance: OMEPRAZOLE
     Route: 048
  11. KALCIPOS-D [Concomitant]
     Active Substance: CALCIUM CARBONATE\CHOLECALCIFEROL
     Route: 048
  12. PARA-TABS [Concomitant]
     Active Substance: ACETAMINOPHEN
     Indication: PREMEDICATION
     Route: 065
     Dates: start: 20150410
  13. HISTEC [Concomitant]
     Route: 065
     Dates: start: 20140417
  14. PREDNISOLON [Concomitant]
     Active Substance: PREDNISOLONE
     Indication: IMMUNE THROMBOCYTOPENIC PURPURA
     Route: 048
     Dates: start: 20150226
  15. MABTHERA [Suspect]
     Active Substance: RITUXIMAB
     Route: 042
     Dates: start: 20150417, end: 20150417

REACTIONS (3)
  - Obliterative bronchiolitis [Recovered/Resolved]
  - Dyspnoea [Recovered/Resolved]
  - Throat irritation [Recovered/Resolved]

NARRATIVE: CASE EVENT DATE: 20150410
